FAERS Safety Report 26105487 (Version 1)
Quarter: 2025Q4

REPORT INFORMATION
  Report Type: Spontaneous
  Country: EU (occurrence: None)
  Receive Date: 20251201
  Receipt Date: 20251201
  Transmission Date: 20260118
  Serious: Yes (Hospitalization)
  Sender: ORGANON
  Company Number: None

PATIENT
  Age: 80 Year
  Sex: Female

DRUGS (15)
  1. SINEMET [Suspect]
     Active Substance: CARBIDOPA\LEVODOPA
     Indication: Bradykinesia
     Dosage: SINEMET 100/25 MG 1/4 CPR X 2 FROM JANUARY 2025.INCREASE SINEMET 100/25 MG TO 1/2 CPR X 2 FROM FEBRUARY 2025. HALVE SINEMENT TO 109/25 MG 1 TABLET/DAY OF HIS OWN ACCORD IN JUNE 2025. INCREASE SINEMET 100/25 MG TO 1 TABLET X 3 FROM 08-SEP-2025
     Dates: start: 20250908, end: 20251101
  2. NORVASC [Concomitant]
     Active Substance: AMLODIPINE BESYLATE
     Indication: Hypertension
     Dosage: 5 MG 1 TABLET IN THE EVENING
  3. BISOPROLOL FUMARATE [Concomitant]
     Active Substance: BISOPROLOL FUMARATE
     Indication: Coronary artery disease
     Dosage: 2.5 MG 1/2 TABLET X 2/DAY
  4. NITROGLYCERIN [Concomitant]
     Active Substance: NITROGLYCERIN
     Indication: Coronary artery disease
     Dosage: 5 MG, ONE PATCH FROM 8 PM TO 8  AM
  5. AMITRIPTYLINE HYDROCHLORIDE [Concomitant]
     Active Substance: AMITRIPTYLINE HYDROCHLORIDE
     Indication: Headache
     Dosage: 10 MG 1 TBSP/DAY
  6. TICHE [Concomitant]
     Indication: Hypothyroidism
     Dosage: CPR 50 MCG FROM MONDAY TO FRIDAY, CPS 75 MCG SATURDAY AND SUNDAY
  7. ASPIRIN [Concomitant]
     Active Substance: ASPIRIN
     Indication: Cerebrovascular disorder
     Dosage: 1 TABLET 100 MG/DAY
  8. ASPIRIN [Concomitant]
     Active Substance: ASPIRIN
     Indication: Coronary artery disease
  9. ATORVASTATIN [Concomitant]
     Active Substance: ATORVASTATIN
     Indication: Coronary artery disease
     Dosage: 1 TABLET 20 MG/DAY
  10. SEVELAMER [Concomitant]
     Active Substance: SEVELAMER
     Indication: Hyperphosphataemia
     Dosage: CPR 800 MG; 3 X 2 PER MEAL/DAY
  11. VALPROATE SODIUM [Concomitant]
     Active Substance: VALPROATE SODIUM
     Indication: Epilepsy
     Dosage: 500 MG X 2/DAY
  12. LEVETIRACETAM [Concomitant]
     Active Substance: LEVETIRACETAM
     Indication: Epilepsy
     Dosage: 250 MG X 2/DAY
  13. ERYTHROPOIETIN [Concomitant]
     Active Substance: ERYTHROPOIETIN
     Indication: Nephrogenic anaemia
     Dosage: 10000 U X 3 PER WEEK
  14. PYRIDOXINE HYDROCHLORIDE [Concomitant]
     Active Substance: PYRIDOXINE HYDROCHLORIDE
     Dosage: CPR 300 MG, 1 300 MG TABLETS, 1  TABLET X 3 PER  WEEK AT THE END OF DIALYSIS.CPR X 3 ALLA SETTIMANA A FINE DIALISI.
     Dates: start: 20250924, end: 20251020
  15. RABEPRAZOL0 [Concomitant]
     Indication: Gastrointestinal disorder
     Dosage: 20 MG TABLET: 1/DAY

REACTIONS (2)
  - Photopsia [Recovered/Resolved]
  - Seizure [Recovered/Resolved]

NARRATIVE: CASE EVENT DATE: 20250911
